FAERS Safety Report 15450233 (Version 3)
Quarter: 2018Q4

REPORT INFORMATION
  Report Type: Spontaneous
  Country: US (occurrence: US)
  Receive Date: 20181001
  Receipt Date: 20181109
  Transmission Date: 20190204
  Serious: No
  Sender: FDA-Public Use
  Company Number: US-PFIZER INC-2018391833

PATIENT
  Age: 51 Year
  Sex: Female

DRUGS (4)
  1. CEFEPIME HCL [Suspect]
     Active Substance: CEFEPIME HYDROCHLORIDE
     Dosage: UNK
  2. SERTRALINE HCL [Suspect]
     Active Substance: SERTRALINE HYDROCHLORIDE
     Dosage: UNK
  3. SULFASALAZINE. [Suspect]
     Active Substance: SULFASALAZINE
     Dosage: UNK
  4. CEFUROXIME. [Suspect]
     Active Substance: CEFUROXIME
     Dosage: UNK

REACTIONS (1)
  - Drug hypersensitivity [Unknown]
